FAERS Safety Report 9493193 (Version 1)
Quarter: 2013Q3

REPORT INFORMATION
  Report Type: Spontaneous
  Country: ES (occurrence: ES)
  Receive Date: 20130902
  Receipt Date: 20130902
  Transmission Date: 20140515
  Serious: Yes (Other)
  Sender: FDA-Public Use
  Company Number: ES-009507513-1308ESP014558

PATIENT
  Age: 21 Year
  Sex: Male

DRUGS (2)
  1. REXER FLAS [Suspect]
     Indication: DEPRESSION
     Dosage: 15 MG, QD
     Route: 048
     Dates: start: 20130826
  2. ALPRAZOLAM [Concomitant]

REACTIONS (1)
  - Convulsion [Recovered/Resolved]
